FAERS Safety Report 11449119 (Version 3)
Quarter: 2015Q4

REPORT INFORMATION
  Report Type: Spontaneous
  Country: US (occurrence: None)
  Receive Date: 20150902
  Receipt Date: 20151119
  Transmission Date: 20160304
  Serious: Yes (Hospitalization, Other)
  Sender: FDA-Public Use
  Company Number: US-MDT-ADR-2015-01684

PATIENT
  Age: 51 Year
  Sex: Female

DRUGS (2)
  1. BACLOFEN ORAL [Suspect]
     Active Substance: BACLOFEN
  2. LIORESAL [Suspect]
     Active Substance: BACLOFEN
     Indication: MUSCLE SPASTICITY
     Dosage: 105 MCG/DAY

REACTIONS (7)
  - Muscle spasms [None]
  - No therapeutic response [None]
  - Incorrect dose administered [None]
  - Muscle spasticity [None]
  - Arthralgia [None]
  - Nerve compression [None]
  - Performance status decreased [None]
